FAERS Safety Report 23929295 (Version 1)
Quarter: 2024Q2

REPORT INFORMATION
  Report Type: Spontaneous
  Country: US (occurrence: US)
  Receive Date: 20240601
  Receipt Date: 20240601
  Transmission Date: 20240715
  Serious: No
  Sender: FDA-Public Use
  Company Number: US-RADIUS HEALTH, INC.-2023US003537

PATIENT
  Age: 73 Year
  Sex: Female

DRUGS (4)
  1. TYMLOS [Suspect]
     Active Substance: ABALOPARATIDE
     Indication: Senile osteoporosis
     Dosage: 80 MICROGRAM, QD
     Route: 058
     Dates: start: 20230518
  2. TYMLOS [Suspect]
     Active Substance: ABALOPARATIDE
     Dosage: 80 MICROGRAM, QD
     Route: 058
     Dates: start: 20230518
  3. TYMLOS [Suspect]
     Active Substance: ABALOPARATIDE
     Dosage: 40 MICROGRAM, QD
     Route: 058
     Dates: start: 20230518
  4. TEMAZEPAM [Concomitant]
     Active Substance: TEMAZEPAM
     Indication: Product used for unknown indication
     Dosage: UNK

REACTIONS (16)
  - Peripheral coldness [Not Recovered/Not Resolved]
  - Chills [Not Recovered/Not Resolved]
  - Fluid retention [Not Recovered/Not Resolved]
  - Weight increased [Unknown]
  - Tinnitus [Not Recovered/Not Resolved]
  - Motion sickness [Unknown]
  - Product dose omission in error [Unknown]
  - Hair growth abnormal [Not Recovered/Not Resolved]
  - Hair texture abnormal [Not Recovered/Not Resolved]
  - Nail disorder [Not Recovered/Not Resolved]
  - Abdominal distension [Not Recovered/Not Resolved]
  - Constipation [Not Recovered/Not Resolved]
  - Fatigue [Not Recovered/Not Resolved]
  - Headache [Unknown]
  - Product dose omission issue [Unknown]
  - Intentional product misuse [Not Recovered/Not Resolved]

NARRATIVE: CASE EVENT DATE: 20230701
